FAERS Safety Report 5390057-6 (Version None)
Quarter: 2007Q3

REPORT INFORMATION
  Report Type: 
  Country: None (occurrence: None)
  Receive Date: 20070718
  Receipt Date: 20070710
  Transmission Date: 20080115
  Serious: Yes (Hospitalization)
  Sender: FDA-Public Use
  Company Number: US-AMGEN-STX224921

PATIENT
  Sex: Female
  Weight: 93.5 kg

DRUGS (5)
  1. ENBREL [Suspect]
     Indication: RHEUMATOID ARTHRITIS
     Route: 058
     Dates: start: 20050808
  2. SULFASALAZINE [Concomitant]
     Route: 048
     Dates: start: 20060421, end: 20070601
  3. PREDNISONE [Concomitant]
     Dates: start: 20020710, end: 20070621
  4. LISINOPRIL [Concomitant]
  5. FOLIC ACID [Concomitant]

REACTIONS (4)
  - INTERVERTEBRAL DISC PROTRUSION [None]
  - PRURITUS [None]
  - RHEUMATOID ARTHRITIS [None]
  - SPONDYLOLISTHESIS [None]
